FAERS Safety Report 4549543-0 (Version None)
Quarter: 2005Q1

REPORT INFORMATION
  Report Type: 
  Country: None (occurrence: None)
  Receive Date: 20050111
  Receipt Date: 20050103
  Transmission Date: 20050727
  Serious: Yes (Hospitalization)
  Sender: FDA-Public Use
  Company Number: FR-ROCHE-391130

PATIENT
  Age: 58 Year
  Sex: Male

DRUGS (2)
  1. ROVALCYTE [Suspect]
     Route: 048
     Dates: start: 20041016
  2. FLUCONAZOLE [Interacting]
     Route: 048
     Dates: start: 20041014, end: 20041026

REACTIONS (3)
  - BLOOD CREATININE INCREASED [None]
  - DRUG INTERACTION [None]
  - DRUG LEVEL INCREASED [None]
